FAERS Safety Report 14595383 (Version 1)
Quarter: 2018Q1

REPORT INFORMATION
  Report Type: Spontaneous
  Country: FR (occurrence: FR)
  Receive Date: 20180302
  Receipt Date: 20180302
  Transmission Date: 20180509
  Serious: Yes (Hospitalization)
  Sender: FDA-Public Use
  Company Number: FR-009507513-1802FRA011285

PATIENT
  Age: 71 Year
  Sex: Female

DRUGS (1)
  1. SINEMET [Suspect]
     Active Substance: CARBIDOPA\LEVODOPA
     Dosage: UNK
     Route: 048
     Dates: start: 2013, end: 20180221

REACTIONS (4)
  - Hyperthermia [Unknown]
  - Somnolence [Unknown]
  - Feeling cold [Unknown]
  - Dental caries [Unknown]

NARRATIVE: CASE EVENT DATE: 201802
